FAERS Safety Report 24908559 (Version 1)
Quarter: 2025Q1

REPORT INFORMATION
  Report Type: Spontaneous
  Country: US (occurrence: US)
  Receive Date: 20250131
  Receipt Date: 20250131
  Transmission Date: 20250409
  Serious: No
  Sender: BOEHRINGER INGELHEIM
  Company Number: US-Komodo Health-a23aa000005YFbFAAW

PATIENT
  Age: 30 Year
  Sex: Male

DRUGS (3)
  1. JARDIANCE [Suspect]
     Active Substance: EMPAGLIFLOZIN
     Indication: Product used for unknown indication
  2. JARDIANCE [Suspect]
     Active Substance: EMPAGLIFLOZIN
  3. GLP-1 [Concomitant]
     Indication: Product used for unknown indication

REACTIONS (2)
  - Hyperkalaemia [Unknown]
  - Dehydration [Not Recovered/Not Resolved]
